FAERS Safety Report 23708791 (Version 1)
Quarter: 2024Q2

REPORT INFORMATION
  Report Type: Spontaneous
  Country: US (occurrence: None)
  Receive Date: 20240404
  Receipt Date: 20240404
  Transmission Date: 20240716
  Serious: Yes (Life-Threatening, Disabling)
  Sender: FDA-Public Use
  Company Number: None

PATIENT
  Age: 42 Year
  Sex: Male
  Weight: 74.84 kg

DRUGS (9)
  1. HYDROMORPHONE [Suspect]
     Active Substance: HYDROMORPHONE
  2. CLONIDINE [Suspect]
     Active Substance: CLONIDINE
  3. TRICORE [Concomitant]
  4. SYNTHROID [Concomitant]
     Active Substance: LEVOTHYROXINE SODIUM
  5. OMEPEROSAL [Concomitant]
  6. CREON [Concomitant]
     Active Substance: PANCRELIPASE AMYLASE\PANCRELIPASE LIPASE\PANCRELIPASE PROTEASE
  7. PHENEGRAN [Concomitant]
  8. SEENA [Concomitant]
  9. IBUPROFEN [Concomitant]
     Active Substance: IBUPROFEN

REACTIONS (9)
  - Device malfunction [None]
  - Incorrect dose administered by device [None]
  - Withdrawal syndrome [None]
  - Accidental overdose [None]
  - Autonomic nervous system imbalance [None]
  - Bedridden [None]
  - Product prescribing error [None]
  - Device defective [None]
  - Quality of life decreased [None]

NARRATIVE: CASE EVENT DATE: 20210720
